FAERS Safety Report 4797650-X (Version None)
Quarter: 2005Q3

REPORT INFORMATION
  Report Type: 
  Country: None (occurrence: None)
  Receive Date: 20050929
  Receipt Date: 20050712
  Transmission Date: 20060218
  Serious: No
  Sender: FDA-Public Use
  Company Number: 05P-163-0305546-00

PATIENT
  Age: 59 Year
  Sex: Male
  Weight: 113.5 kg

DRUGS (10)
  1. HUMIRA [Suspect]
     Indication: RHEUMATOID ARTHRITIS
     Dosage: 40 MG, 1 IN 10 D, SUBCUTANEOUS
     Route: 058
     Dates: start: 20040101
  2. ATORVASTATIN CALCIUM [Concomitant]
  3. RAMIPRIL [Concomitant]
  4. OMEPRAZOLE [Concomitant]
  5. ASPIRIN [Concomitant]
  6. NAPROXEN [Concomitant]
  7. LEVOTHYROXINE SODIUM [Concomitant]
  8. METFORMIN HCL [Concomitant]
  9. GABAPENTIN [Concomitant]
  10. VICODIN [Concomitant]

REACTIONS (1)
  - INJECTION SITE HAEMORRHAGE [None]
